FAERS Safety Report 25205405 (Version 2)
Quarter: 2025Q4

REPORT INFORMATION
  Report Type: Spontaneous
  Country: CA (occurrence: CA)
  Receive Date: 20250417
  Receipt Date: 20251013
  Transmission Date: 20260118
  Serious: Yes (Hospitalization, Other)
  Sender: Kenvue
  Company Number: CA-KENVUE-20250402539

PATIENT

DRUGS (1)
  1. MOTRIN [Suspect]
     Active Substance: IBUPROFEN
     Indication: Product used for unknown indication
     Dosage: UNK, STRENGTH 200 MG
     Route: 065

REACTIONS (2)
  - Heart failure with preserved ejection fraction [Unknown]
  - Fluid retention [Unknown]

NARRATIVE: CASE EVENT DATE: 20241001
